FAERS Safety Report 19286252 (Version 2)
Quarter: 2021Q2

REPORT INFORMATION
  Report Type: Spontaneous
  Country: GB (occurrence: GB)
  Receive Date: 20210521
  Receipt Date: 20210611
  Transmission Date: 20210717
  Serious: Yes (Other)
  Sender: FDA-Public Use
  Company Number: GB-REGENERON PHARMACEUTICALS, INC.-2021-49770

PATIENT

DRUGS (4)
  1. EYLEA [Suspect]
     Active Substance: AFLIBERCEPT
     Indication: DIABETIC RETINAL OEDEMA
     Dosage: 1 DF, RIGHT EYE, 1 EYLEA INJECTION
  2. EYLEA [Suspect]
     Active Substance: AFLIBERCEPT
     Dosage: 1 DF, ONCE, RIGHT EYE, 2 EYLEA DOSES
     Route: 031
     Dates: start: 20210226, end: 20210226
  3. EYLEA [Suspect]
     Active Substance: AFLIBERCEPT
     Dosage: 1 DF, ONCE, RIGHT EYE, 3 EYLEA DOSES IN TOTAL BEFORE THE EVENT
     Route: 031
     Dates: start: 20210326, end: 20210326
  4. DIAMOX SEQUELS [Concomitant]
     Active Substance: ACETAZOLAMIDE
     Indication: PRODUCT USED FOR UNKNOWN INDICATION
     Dosage: 500 MG, ONCE
     Route: 048
     Dates: start: 20210326, end: 20210326

REACTIONS (4)
  - Retinal artery occlusion [Unknown]
  - Blindness transient [Recovered/Resolved]
  - Device use issue [Unknown]
  - Intraocular pressure increased [Recovering/Resolving]

NARRATIVE: CASE EVENT DATE: 20210326
